FAERS Safety Report 6936483-2 (Version None)
Quarter: 2010Q3

REPORT INFORMATION
  Report Type: 
  Country: None (occurrence: None)
  Receive Date: 20100818
  Receipt Date: 20100806
  Transmission Date: 20110219
  Serious: Yes (Hospitalization, Other)
  Sender: FDA-Public Use
  Company Number: 232652J09USA

PATIENT
  Age: 31 Year
  Sex: Female

DRUGS (5)
  1. REBIF [Suspect]
     Indication: MULTIPLE SCLEROSIS
     Dosage: 44 MCG, 3 IN 1 WK, SUBCUTANEOUS
     Route: 058
     Dates: start: 20090601, end: 20090925
  2. PROZAC [Concomitant]
  3. BACLOFEN [Concomitant]
  4. TIZANIDINE HCL [Concomitant]
  5. SYNTHROID [Concomitant]

REACTIONS (14)
  - ANXIETY [None]
  - ARRESTED LABOUR [None]
  - DEPRESSION [None]
  - DRUG EXPOSURE DURING PREGNANCY [None]
  - DYSPNOEA [None]
  - HEART RATE INCREASED [None]
  - INTERNATIONAL NORMALISED RATIO ABNORMAL [None]
  - LUNG NEOPLASM [None]
  - MULTIPLE SCLEROSIS [None]
  - NEPHROLITHIASIS [None]
  - PREGNANCY [None]
  - PREMATURE LABOUR [None]
  - PREMATURE RUPTURE OF MEMBRANES [None]
  - THROMBOSIS [None]
